FAERS Safety Report 21629958 (Version 1)
Quarter: 2022Q4

REPORT INFORMATION
  Report Type: Report from Study
  Country: US (occurrence: US)
  Receive Date: 20221122
  Receipt Date: 20221122
  Transmission Date: 20230112
  Serious: No
  Sender: FDA-Public Use
  Company Number: US-SUNOVION-2022SUN003266AA

PATIENT
  Age: 79 Year
  Sex: Female

DRUGS (1)
  1. KYNMOBI [Suspect]
     Active Substance: APOMORPHINE HYDROCHLORIDE
     Dosage: 10 MG
     Route: 060
     Dates: start: 20221121

REACTIONS (3)
  - Flushing [Unknown]
  - Nausea [Unknown]
  - Vomiting [Unknown]

NARRATIVE: CASE EVENT DATE: 20221121
